FAERS Safety Report 9067243 (Version 1)
Quarter: 2013Q1

REPORT INFORMATION
  Report Type: Report from Study
  Country: US (occurrence: US)
  Receive Date: 20130201
  Receipt Date: 20130201
  Transmission Date: 20140127
  Serious: Yes (Other)
  Sender: FDA-Public Use
  Company Number: US-ABBOTT-12P-163-1025769-00

PATIENT
  Age: 52 None
  Sex: Female

DRUGS (1)
  1. HUMIRA [Suspect]
     Indication: COLITIS ULCERATIVE
     Dates: start: 20120925

REACTIONS (3)
  - Appendicitis [Recovered/Resolved]
  - Injection site pruritus [Not Recovered/Not Resolved]
  - Eye operation [Unknown]
